FAERS Safety Report 17870427 (Version 1)
Quarter: 2020Q2

REPORT INFORMATION
  Report Type: Spontaneous
  Country: US (occurrence: US)
  Receive Date: 20200605
  Receipt Date: 20200605
  Transmission Date: 20200714
  Serious: Yes (Hospitalization)
  Sender: FDA-Public Use
  Company Number: None

PATIENT
  Sex: Male
  Weight: 87 kg

DRUGS (2)
  1. CARBOPLATIN. [Suspect]
     Active Substance: CARBOPLATIN
     Dates: end: 20200506
  2. TAXOL [Suspect]
     Active Substance: PACLITAXEL
     Dates: end: 20200506

REACTIONS (10)
  - Fall [None]
  - Product use in unapproved indication [None]
  - Therapy interrupted [None]
  - Abdominal pain [None]
  - Decreased appetite [None]
  - Asthenia [None]
  - Facial bones fracture [None]
  - Enteritis [None]
  - Dehydration [None]
  - Orthostatic hypotension [None]

NARRATIVE: CASE EVENT DATE: 20200509
